FAERS Safety Report 5862356-2 (Version None)
Quarter: 2008Q3

REPORT INFORMATION
  Report Type: 
  Country: None (occurrence: None)
  Receive Date: 20080826
  Receipt Date: 20080815
  Transmission Date: 20090109
  Serious: Yes (Hospitalization)
  Sender: FDA-Public Use
  Company Number: 2008AP002051

PATIENT
  Age: 66 Year
  Sex: Male

DRUGS (3)
  1. CARBAMAZEPINE [Suspect]
     Indication: EPILEPSY
     Dosage: 400 MG; BID
  2. PHENOBARBITAL TAB [Suspect]
     Indication: EPILEPSY
  3. CLARITHROMYCIN [Suspect]
     Indication: SINUSITIS
     Dosage: 500 MG; BID

REACTIONS (6)
  - BALANCE DISORDER [None]
  - DIPLOPIA [None]
  - DRUG INTERACTION [None]
  - DRUG TOXICITY [None]
  - DYSARTHRIA [None]
  - SINUSITIS [None]
